FAERS Safety Report 25301545 (Version 1)
Quarter: 2025Q2

REPORT INFORMATION
  Report Type: Spontaneous
  Country: US (occurrence: None)
  Receive Date: 20250512
  Receipt Date: 20250512
  Transmission Date: 20250716
  Serious: Yes (Hospitalization)
  Sender: FDA-CTU
  Company Number: None

PATIENT
  Sex: Female

DRUGS (3)
  1. TEZSPIRE [Suspect]
     Active Substance: TEZEPELUMAB-EKKO
     Indication: Asthma
     Dosage: FREQUENCY : MONTHLY;?
     Route: 058
  2. NEXIUM CAP [Concomitant]
  3. PRENATAL TAB [Concomitant]

REACTIONS (6)
  - Bronchitis [None]
  - Pneumonia [None]
  - Sepsis [None]
  - Asthma [None]
  - Quality of life decreased [None]
  - Product use issue [None]
